FAERS Safety Report 9296358 (Version 8)
Quarter: 2014Q1

REPORT INFORMATION
  Report Type: Report from Study
  Country: US (occurrence: US)
  Receive Date: 20130517
  Receipt Date: 20140325
  Transmission Date: 20141002
  Serious: Yes (Hospitalization)
  Sender: FDA-Public Use
  Company Number: US-BRISTOL-MYERS SQUIBB COMPANY-18784553

PATIENT
  Age: 57 Year
  Sex: Female
  Weight: 58.2 kg

DRUGS (21)
  1. NIVOLUMAB [Suspect]
     Indication: MALIGNANT MELANOMA
     Dosage: INT 26FEB13, LAST DOSE 26FEB13
     Route: 042
     Dates: start: 20130115
  2. IPILIMUMAB [Suspect]
     Dates: start: 20130326
  3. ATIVAN [Concomitant]
     Indication: ANXIETY
     Dosage: TABLET.?Q8H
     Route: 048
  4. ATIVAN [Concomitant]
     Indication: NAUSEA
     Dosage: TABLET.?Q8H
     Route: 048
  5. COMPAZINE [Concomitant]
     Indication: NAUSEA
     Dosage: TABLET?Q6H
     Route: 048
  6. DEXAMETHASONE [Concomitant]
     Dosage: 2MG TABLET-TAKE 2 QAM -TAKE 4MG* 5DAYS,2MG FOR 2 DAYS THEN STOP* 7 DAYS
     Route: 048
  7. KEPPRA [Concomitant]
     Dosage: TABLET.?X30 DAYS.
     Route: 048
  8. MEMANTINE HCL [Concomitant]
     Dosage: QD*1 WEEK?TABLET?10MG PO BID* 6MONTHS*30DAYS
     Route: 048
  9. METRONIDAZOLE [Concomitant]
     Dosage: GEL (GRAM), 1 APPLICATION?APPLY TO FACE BID*30 DAYS
     Route: 061
  10. OMEGA 3 FATTY ACID [Concomitant]
     Dosage: CAPSULE
     Route: 048
  11. OXYCODONE [Concomitant]
     Indication: PAIN
     Dosage: 1 TABLET Q3-4 HOURS
     Route: 048
  12. OXYCODONE [Concomitant]
     Indication: PYREXIA
     Dosage: 1 TABLET Q3-4 HOURS
     Route: 048
  13. TYLENOL [Concomitant]
     Indication: PAIN
     Dosage: TABLET, PRN
     Route: 048
  14. VITAMIN B12 [Concomitant]
     Dosage: TABLET
     Route: 048
  15. VITAMIN D3 [Concomitant]
     Dosage: TABLET
     Route: 048
  16. ZOFRAN [Concomitant]
     Indication: NAUSEA
     Dosage: TABLET, PRN
     Route: 048
  17. DOCUSATE SODIUM [Concomitant]
     Route: 048
  18. KEPPRA [Concomitant]
     Dosage: 30 DAYS
     Route: 048
  19. BACTRIM [Concomitant]
  20. OMEPRAZOLE [Concomitant]
  21. FAMOTIDINE [Concomitant]

REACTIONS (3)
  - Colitis [Recovered/Resolved]
  - Vomiting [Recovered/Resolved]
  - Dehydration [Recovered/Resolved]
